FAERS Safety Report 7738501-0 (Version None)
Quarter: 2011Q3

REPORT INFORMATION
  Report Type: 
  Country: None (occurrence: None)
  Receive Date: 20110906
  Receipt Date: 20110825
  Transmission Date: 20111222
  Serious: Yes (Other)
  Sender: FDA-Public Use
  Company Number: 1000023185

PATIENT
  Age: 63 Year
  Sex: Female

DRUGS (9)
  1. ACYCLOVIR [Concomitant]
  2. FOLIC ACID [Concomitant]
  3. LIPITOR [Concomitant]
  4. ASCORBIC ACID [Concomitant]
  5. COENZYME Q10 [Concomitant]
  6. HYDROCHLOROTHIAZIDE [Concomitant]
  7. MULTI-VITAMIN [Concomitant]
  8. ACIDOPHILUS (LACTOBACILLUS ACIDOPHILUS) [Concomitant]
  9. CELEXA [Suspect]
     Indication: DEPRESSION
     Dates: start: 20060401

REACTIONS (3)
  - GASTROINTESTINAL HYPOMOTILITY [None]
  - ANAL SPHINCTER ATONY [None]
  - ABDOMINAL PAIN UPPER [None]
